FAERS Safety Report 13566549 (Version 1)
Quarter: 2017Q2

REPORT INFORMATION
  Report Type: Spontaneous
  Country: US (occurrence: US)
  Receive Date: 20170522
  Receipt Date: 20170522
  Transmission Date: 20170830
  Serious: No
  Sender: FDA-Public Use
  Company Number: US-TEVA-748037USA

PATIENT
  Age: 54 Year
  Sex: Female

DRUGS (1)
  1. CISPLATIN. [Suspect]
     Active Substance: CISPLATIN
     Indication: TONGUE CANCER METASTATIC
     Dosage: 100 MG/M2 EVERY 3 WEEKS FOR 3 CYCLES
     Route: 065

REACTIONS (2)
  - Raynaud^s phenomenon [Recovered/Resolved]
  - Tongue disorder [Recovered/Resolved]
